FAERS Safety Report 16128607 (Version 2)
Quarter: 2019Q3

REPORT INFORMATION
  Report Type: Report from Study
  Country: None (occurrence: US)
  Receive Date: 20190328
  Receipt Date: 20190709
  Transmission Date: 20191004
  Serious: Yes (Hospitalization, Other)
  Sender: FDA-Public Use
  Company Number: US-ABBVIE-19K-163-2640957-00

PATIENT
  Age: 24 Year
  Sex: Female
  Weight: 44.04 kg

DRUGS (2)
  1. HUMIRA [Suspect]
     Active Substance: ADALIMUMAB
     Indication: RHEUMATOID ARTHRITIS
     Route: 058
     Dates: start: 2017, end: 2019
  2. HUMIRA [Suspect]
     Active Substance: ADALIMUMAB
     Route: 058
     Dates: start: 2019

REACTIONS (13)
  - Immunodeficiency [Unknown]
  - Hyperaesthesia [Unknown]
  - Breast pain [Unknown]
  - Erythema [Unknown]
  - Sepsis [Unknown]
  - Blood magnesium decreased [Unknown]
  - Swelling [Unknown]
  - Breast swelling [Unknown]
  - Staphylococcal sepsis [Unknown]
  - Vascular device infection [Unknown]
  - Injection site pain [Unknown]
  - Chest pain [Unknown]
  - Blood potassium decreased [Unknown]

NARRATIVE: CASE EVENT DATE: 2019
